FAERS Safety Report 24567840 (Version 2)
Quarter: 2024Q4

REPORT INFORMATION
  Report Type: Spontaneous
  Country: JP (occurrence: JP)
  Receive Date: 20241031
  Receipt Date: 20241101
  Transmission Date: 20250115
  Serious: Yes (Other)
  Sender: BAXTER
  Company Number: JP-BAXTERJP-2024BAX024969AA

PATIENT
  Age: 53 Year
  Sex: Female
  Weight: 38.5 kg

DRUGS (2)
  1. SUPRANE [Suspect]
     Active Substance: DESFLURANE
     Indication: Maintenance of anaesthesia
  2. SUPRANE [Suspect]
     Active Substance: DESFLURANE
     Indication: Sedative therapy

REACTIONS (1)
  - Neuromyelitis optica spectrum disorder [Not Recovered/Not Resolved]
